FAERS Safety Report 5615176-8 (Version None)
Quarter: 2008Q1

REPORT INFORMATION
  Report Type: 
  Country: None (occurrence: None)
  Receive Date: 20080206
  Receipt Date: 20071112
  Transmission Date: 20080703
  Serious: Yes (Hospitalization, Disabling, Other)
  Sender: FDA-Public Use
  Company Number: A0693930A

PATIENT

DRUGS (2)
  1. ARIXTRA [Suspect]
     Dosage: 2.5MG AS REQUIRED
     Route: 058
  2. ASPIRIN [Concomitant]

REACTIONS (1)
  - HAEMORRHAGE [None]
